FAERS Safety Report 25467232 (Version 1)
Quarter: 2025Q2

REPORT INFORMATION
  Report Type: Spontaneous
  Country: US (occurrence: US)
  Receive Date: 20250623
  Receipt Date: 20250623
  Transmission Date: 20250717
  Serious: No
  Sender: BLUEPRINT MEDICINES
  Company Number: US-Blueprint Medicines Corporation-2025-AER-01328

PATIENT

DRUGS (2)
  1. AYVAKIT [Suspect]
     Active Substance: AVAPRITINIB
     Indication: Product used for unknown indication
     Route: 065
  2. BEZUCLASTINIB [Suspect]
     Active Substance: BEZUCLASTINIB
     Indication: Product used for unknown indication
     Route: 065

REACTIONS (1)
  - Neurological symptom [Unknown]
